FAERS Safety Report 16778781 (Version 1)
Quarter: 2019Q3

REPORT INFORMATION
  Report Type: Report from Study
  Country: JP (occurrence: JP)
  Receive Date: 20190906
  Receipt Date: 20190906
  Transmission Date: 20191005
  Serious: Yes (Hospitalization)
  Sender: FDA-Public Use
  Company Number: JP-SA-2019SA243610

PATIENT
  Age: 63 Year
  Sex: Male
  Weight: 41.2 kg

DRUGS (19)
  1. BIOFERMIN R [Concomitant]
     Active Substance: DIETARY SUPPLEMENT\PROBIOTICS
     Dosage: UNK
     Dates: start: 20180619
  2. FUCIDIN LEO [Concomitant]
     Active Substance: FUSIDATE SODIUM
     Dosage: UNK
     Dates: start: 20190604
  3. LUSEFI [Concomitant]
     Active Substance: LUSEOGLIFLOZIN
     Dosage: UNK
     Dates: start: 1995
  4. HANGESHASHINTO [COPTIS SPP. RHIZOME;GLYCYRRHIZA SPP. ROOT;PANAX GINSEN [Concomitant]
     Active Substance: HERBALS
     Dosage: UNK
     Dates: start: 20190709
  5. LOPENA [Concomitant]
     Dosage: UNK
     Dates: start: 20181215
  6. TENELIA [Concomitant]
     Active Substance: TENELIGLIPTIN
     Dosage: UNK
     Dates: start: 1995
  7. ATELEC [Concomitant]
     Active Substance: CILNIDIPINE
     Dosage: UNK
     Dates: start: 1995
  8. TAS 118 [Suspect]
     Active Substance: GIMERACIL\LEUCOVORIN\OTERACIL\TEGAFUR
     Indication: GASTRIC CANCER
     Dosage: 40 MG, BID
     Route: 048
     Dates: start: 20181107, end: 20181225
  9. ASPARA POTASSIUM [Concomitant]
     Active Substance: POTASSIUM ASPARTATE
     Dosage: UNK
     Dates: start: 20190730
  10. PLAVIX [Concomitant]
     Active Substance: CLOPIDOGREL BISULFATE
     Dosage: UNK
     Dates: start: 1995
  11. MICOMBI COMBINATION [Concomitant]
     Active Substance: HYDROCHLOROTHIAZIDE\TELMISARTAN
     Dosage: UNK
     Dates: start: 1995
  12. MIYA-BM [Concomitant]
     Active Substance: CLOSTRIDIUM BUTYRICUM SPORES STRAIN M-55
     Dosage: UNK
     Dates: start: 20180619
  13. EMEND [Concomitant]
     Active Substance: APREPITANT
     Dosage: UNK
     Dates: start: 20181107
  14. AZ [SODIUM BICARBONATE;SODIUM GUALENATE HYDRATE] [Concomitant]
     Dosage: UNK
     Dates: start: 20181106
  15. TELMISARTAN. [Concomitant]
     Active Substance: TELMISARTAN
     Dosage: UNK
     Dates: start: 1995
  16. TAS 118 [Suspect]
     Active Substance: GIMERACIL\LEUCOVORIN\OTERACIL\TEGAFUR
     Dosage: 40 MG, BID
     Route: 048
     Dates: start: 20181107
  17. CRAVIT [Concomitant]
     Active Substance: LEVOFLOXACIN
     Dosage: UNK
     Dates: start: 20190618
  18. OXALIPLATIN. [Suspect]
     Active Substance: OXALIPLATIN
     Indication: GASTRIC CANCER
     Dosage: 65 MG/M2, QD
     Route: 041
     Dates: start: 20181107
  19. HEPARINOID [Concomitant]
     Active Substance: CHONDROITIN SULFATE (BOVINE)
     Dosage: UNK
     Dates: start: 20190806

REACTIONS (1)
  - Decreased appetite [Recovering/Resolving]

NARRATIVE: CASE EVENT DATE: 20190810
